FAERS Safety Report 12841191 (Version 1)
Quarter: 2016Q4

REPORT INFORMATION
  Report Type: Spontaneous
  Country: LU (occurrence: LU)
  Receive Date: 20161012
  Receipt Date: 20161012
  Transmission Date: 20170207
  Serious: Yes (Hospitalization)
  Sender: FDA-Public Use
  Company Number: LU-JNJFOC-20161001970

PATIENT
  Age: 53 Year
  Sex: Male

DRUGS (3)
  1. MEDROL [Suspect]
     Active Substance: METHYLPREDNISOLONE
     Indication: PROSTATE CANCER METASTATIC
     Dosage: DURATION 8 MONTHS
     Route: 048
     Dates: start: 201512, end: 20160816
  2. DEPO ELIGARD [Concomitant]
     Indication: PROSTATE CANCER
     Route: 065
     Dates: start: 2015
  3. ZYTIGA [Suspect]
     Active Substance: ABIRATERONE ACETATE
     Indication: PROSTATE CANCER METASTATIC
     Dosage: DURATION 8 MONTHS
     Route: 048
     Dates: start: 201512, end: 20160816

REACTIONS (3)
  - Abnormal behaviour [Recovered/Resolved]
  - Affect lability [Recovered/Resolved]
  - Mania [Recovered/Resolved]

NARRATIVE: CASE EVENT DATE: 201607
